FAERS Safety Report 5043092-1 (Version None)
Quarter: 2006Q2

REPORT INFORMATION
  Report Type: 
  Country: None (occurrence: None)
  Receive Date: 20060628
  Receipt Date: 20060615
  Transmission Date: 20061013
  Serious: Yes (Death, Life-Threatening)
  Sender: FDA-Public Use
  Company Number: HQWYE256216JUN06

PATIENT
  Age: 66 Year
  Sex: Male

DRUGS (4)
  1. MYLOTARG [Suspect]
     Indication: ACUTE MYELOID LEUKAEMIA RECURRENT
     Dosage: 9  MG/M^2 1 PER 1 DAY INTRAVENOUS DRIP
     Route: 041
     Dates: start: 20060327, end: 20060327
  2. POLYMYXIN B SULFATE (POLYMYXIN B SULFATE) [Concomitant]
  3. RABEPRAZOLE SODIUM [Concomitant]
  4. NEUTROGIN (LENOGRASTIM) [Concomitant]

REACTIONS (9)
  - ALANINE AMINOTRANSFERASE INCREASED [None]
  - ASPARTATE AMINOTRANSFERASE INCREASED [None]
  - BILIRUBIN CONJUGATED INCREASED [None]
  - BLOOD BILIRUBIN INCREASED [None]
  - BLOOD LACTATE DEHYDROGENASE INCREASED [None]
  - DISSEMINATED INTRAVASCULAR COAGULATION [None]
  - HEPATIC FUNCTION ABNORMAL [None]
  - INFECTION [None]
  - INTERSTITIAL LUNG DISEASE [None]
